FAERS Safety Report 5060552-8 (Version None)
Quarter: 2006Q3

REPORT INFORMATION
  Report Type: 
  Country: None (occurrence: None)
  Receive Date: 20060725
  Receipt Date: 20051229
  Transmission Date: 20061208
  Serious: Yes (Life-Threatening, Hospitalization)
  Sender: FDA-Public Use
  Company Number: DE-BRISTOL-MYERS SQUIBB COMPANY-13232624

PATIENT
  Age: 55 Year
  Sex: Female
  Weight: 84 kg

DRUGS (13)
  1. CYCLOPHOSPHAMIDE [Suspect]
     Indication: BREAST CANCER
     Route: 042
     Dates: start: 20051012, end: 20051123
  2. TAXOL [Suspect]
     Indication: BREAST CANCER
     Route: 042
     Dates: start: 20051214
  3. EPIRUBICIN [Suspect]
     Indication: BREAST CANCER
     Route: 042
     Dates: start: 20051012, end: 20051123
  4. EPIRUBICIN [Suspect]
     Route: 042
     Dates: start: 20051012, end: 20051123
  5. ARANESP [Suspect]
     Indication: ERYTHROPENIA
     Route: 030
     Dates: start: 20051012
  6. XELODA [Suspect]
     Indication: BREAST CANCER
     Route: 048
     Dates: start: 20051214
  7. NAVOBAN [Concomitant]
     Dates: start: 20051012
  8. NAVOBAN [Concomitant]
     Route: 048
     Dates: start: 20051012, end: 20051222
  9. DEXAMETHASONE TAB [Concomitant]
     Indication: PREMEDICATION
     Route: 042
     Dates: start: 20051012, end: 20051126
  10. TAVEGIL [Concomitant]
     Indication: PREMEDICATION
     Route: 042
     Dates: start: 20051012, end: 20051221
  11. RANITIDINE [Concomitant]
     Indication: PREMEDICATION
     Route: 042
     Dates: start: 20051012, end: 20051221
  12. FERRO SANOL [Concomitant]
     Route: 048
     Dates: start: 20051010, end: 20051228
  13. UROMITEXAN [Concomitant]

REACTIONS (1)
  - PULMONARY EMBOLISM [None]
